FAERS Safety Report 7897338-2 (Version None)
Quarter: 2011Q4

REPORT INFORMATION
  Report Type: 
  Country: None (occurrence: None)
  Receive Date: 20111107
  Receipt Date: 20111025
  Transmission Date: 20120403
  Serious: Yes (Hospitalization)
  Sender: FDA-Public Use
  Company Number: PHEH2011US07757

PATIENT
  Sex: Male
  Weight: 98 kg

DRUGS (6)
  1. CYCLOSPORINE [Suspect]
     Indication: PROPHYLAXIS AGAINST TRANSPLANT REJECTION
     Dosage: 300 MG, QD
     Route: 042
     Dates: start: 19850524
  2. METHYLPREDNISOLONE [Concomitant]
     Indication: HEART TRANSPLANT REJECTION
     Dosage: UNK UKN, UNK
  3. AZATHIOPRINE [Concomitant]
     Indication: HEART TRANSPLANT REJECTION
     Dosage: UNK UKN, UNK
  4. PREDNISONE [Concomitant]
     Dosage: 5 MG, QD
     Dates: start: 19850524
  5. MYCOPHENOLATE MOFETIL (CELLCEPT) [Concomitant]
     Indication: HEART TRANSPLANT REJECTION
     Dosage: 2000 MG, QD
     Dates: start: 19880601
  6. CARDURA [Concomitant]
     Dosage: 2 MG, QD
     Dates: start: 19880715

REACTIONS (2)
  - PNEUMONIA [None]
  - ARRHYTHMIA [None]
